FAERS Safety Report 17649477 (Version 1)
Quarter: 2020Q2

REPORT INFORMATION
  Report Type: Spontaneous
  Country: FR (occurrence: FR)
  Receive Date: 20200409
  Receipt Date: 20200409
  Transmission Date: 20200713
  Serious: Yes (Death)
  Sender: FDA-Public Use
  Company Number: FR-ASTRAZENECA-2020SE47871

PATIENT
  Age: 72 Year
  Sex: Male
  Weight: 70 kg

DRUGS (4)
  1. ASPIRINE [Suspect]
     Active Substance: ASPIRIN
     Indication: ACUTE CORONARY SYNDROME
     Route: 048
     Dates: start: 20200323, end: 20200324
  2. ARIXTRA [Suspect]
     Active Substance: FONDAPARINUX SODIUM
     Indication: ACUTE CORONARY SYNDROME
     Dosage: 2,5 MG/0,5 ML, 1 DF ONCE/SINGLE ADMINISTRATION
     Route: 058
     Dates: start: 20200323, end: 20200323
  3. BRILIQUE [Suspect]
     Active Substance: TICAGRELOR
     Indication: ACUTE CORONARY SYNDROME
     Route: 048
     Dates: start: 20200323, end: 20200324
  4. HEPARIN [Suspect]
     Active Substance: HEPARIN SODIUM
     Indication: ANGIOCARDIOGRAM
     Dosage: 5000.0IU ONCE/SINGLE ADMINISTRATION
     Route: 042
     Dates: start: 20200324, end: 20200324

REACTIONS (1)
  - Cerebral haemorrhage [Fatal]

NARRATIVE: CASE EVENT DATE: 20200324
